FAERS Safety Report 17628906 (Version 1)
Quarter: 2020Q2

REPORT INFORMATION
  Report Type: Spontaneous
  Country: FR (occurrence: FR)
  Receive Date: 20200406
  Receipt Date: 20200406
  Transmission Date: 20200713
  Serious: Yes (Hospitalization)
  Sender: FDA-Public Use
  Company Number: FR-TEVA-2020-FR-1218421

PATIENT
  Age: 66 Year
  Sex: Female

DRUGS (6)
  1. AMOXICILLINE [Concomitant]
     Active Substance: AMOXICILLIN
  2. UVEDOSE [Concomitant]
     Active Substance: CHOLECALCIFEROL
  3. NEBIVOLOL. [Concomitant]
     Active Substance: NEBIVOLOL
  4. AZITHROMYCINE ANHYDRE [Suspect]
     Active Substance: AZITHROMYCIN ANHYDROUS
     Indication: INFECTION
     Dosage: 500 MG 1 DAYS
     Route: 048
     Dates: start: 20200217, end: 20200219
  5. COAPROVEL 300 MG/12,5 MG, COMPRIM? [Suspect]
     Active Substance: HYDROCHLOROTHIAZIDE\IRBESARTAN
     Indication: HYPERTENSION
     Dosage: 1 DOSAGE FORMS 1 DAYS
     Route: 048
     Dates: end: 20200228
  6. XARELTO [Concomitant]
     Active Substance: RIVAROXABAN

REACTIONS (1)
  - Hyponatraemia [Recovering/Resolving]

NARRATIVE: CASE EVENT DATE: 202002
